FAERS Safety Report 9407597 (Version 1)
Quarter: 2013Q3

REPORT INFORMATION
  Report Type: Spontaneous
  Country: US (occurrence: None)
  Receive Date: 20130717
  Receipt Date: 20130717
  Transmission Date: 20140515
  Serious: No
  Sender: FDA-Public Use
  Company Number: None

PATIENT
  Age: 43 Year
  Sex: Male
  Weight: 122.47 kg

DRUGS (4)
  1. AMPHETAMINE SALTS [Suspect]
     Indication: DEPRESSION
     Dosage: TAKE 2 EVERY MORNING DAILY PO LAST MONTH
     Route: 048
  2. AMPHETAMINE SALTS [Suspect]
     Indication: ATTENTION DEFICIT/HYPERACTIVITY DISORDER
     Dosage: TAKE 2 EVERY MORNING DAILY PO LAST MONTH
     Route: 048
  3. AMPHETAMINE SALTS [Suspect]
     Indication: ATTENTION DEFICIT/HYPERACTIVITY DISORDER
     Dosage: TAKE 2 EVERY MORNING DAILY PO THIS MONTH
     Route: 048
  4. AMPHETAMINE SALTS [Suspect]
     Indication: DEPRESSION
     Dosage: TAKE 2 EVERY MORNING DAILY PO THIS MONTH
     Route: 048

REACTIONS (2)
  - Product substitution issue [None]
  - Drug effect decreased [None]
